FAERS Safety Report 10029023 (Version 8)
Quarter: 2015Q4

REPORT INFORMATION
  Report Type: Report from Study
  Country: DE (occurrence: DE)
  Receive Date: 20140321
  Receipt Date: 20151006
  Transmission Date: 20160304
  Serious: Yes (Other)
  Sender: FDA-Public Use
  Company Number: PHHY2014DE033565

PATIENT
  Age: 49 Year
  Sex: Female
  Weight: 79 kg

DRUGS (15)
  1. GRAVISTAT [Concomitant]
     Indication: PRODUCT USED FOR UNKNOWN INDICATION
     Dosage: 1 DF, QD (1-0-0)
     Route: 065
     Dates: start: 19971022, end: 20140312
  2. GILENYA [Suspect]
     Active Substance: FINGOLIMOD HYDROCHLORIDE
     Indication: MULTIPLE SCLEROSIS
     Dosage: 0.5 MG, QD
     Route: 048
     Dates: start: 20110505
  3. LYRICA [Concomitant]
     Active Substance: PREGABALIN
     Dosage: 1 DF, BID (1-0-1)
     Route: 048
     Dates: start: 20110704, end: 20130731
  4. ATACAND [Concomitant]
     Active Substance: CANDESARTAN CILEXETIL
     Indication: PRODUCT USED FOR UNKNOWN INDICATION
     Dosage: 1 DF, QD (1-0-0)
     Route: 065
     Dates: start: 20091114
  5. BACLOFEN. [Concomitant]
     Active Substance: BACLOFEN
     Dosage: 10 MG, BID
     Route: 048
     Dates: start: 20140121, end: 20140126
  6. LYRICA [Concomitant]
     Active Substance: PREGABALIN
     Dosage: 1 DF, QD  (1-0-0)
     Route: 048
     Dates: start: 20140216, end: 20140220
  7. BACLOFEN. [Concomitant]
     Active Substance: BACLOFEN
     Dosage: 10 MG, BID
     Route: 048
     Dates: start: 20140203, end: 20140215
  8. LYRICA [Concomitant]
     Active Substance: PREGABALIN
     Indication: PAIN
     Dosage: 1 DF, BID (1-0-1)
     Route: 048
     Dates: start: 20090704
  9. BACLOFEN. [Concomitant]
     Active Substance: BACLOFEN
     Indication: MUSCLE SPASTICITY
     Dosage: 10 MG, QD
     Route: 048
     Dates: start: 20101019, end: 20140120
  10. LYRICA [Concomitant]
     Active Substance: PREGABALIN
     Dosage: 3 DF,(2-0-1)
     Route: 048
     Dates: start: 20130801, end: 20140202
  11. LYRICA [Concomitant]
     Active Substance: PREGABALIN
     Dosage: 2 DF, QD (2-0-0)
     Route: 048
     Dates: start: 20140203, end: 20140215
  12. IBUFLAM [Concomitant]
     Active Substance: IBUPROFEN
     Indication: PAIN
     Dosage: 600 MG, PRN
     Route: 065
     Dates: start: 20140222
  13. JUBRELE [Concomitant]
     Indication: CONTRACEPTION
     Dosage: 1 DF, QD  (1-0-0)
     Route: 048
     Dates: start: 20140313
  14. BACLOFEN. [Concomitant]
     Active Substance: BACLOFEN
     Dosage: 10 MG, TID
     Route: 048
     Dates: start: 20140127, end: 20140202
  15. BACLOFEN. [Concomitant]
     Active Substance: BACLOFEN
     Dosage: 10 MG, QD
     Route: 048
     Dates: start: 20140216, end: 20140221

REACTIONS (5)
  - Spinal column injury [Recovered/Resolved]
  - Hypertension [Recovered/Resolved]
  - Fall [Recovered/Resolved]
  - Loss of consciousness [Recovered/Resolved]
  - Circulatory collapse [Recovered/Resolved]

NARRATIVE: CASE EVENT DATE: 20130415
